FAERS Safety Report 9933621 (Version 1)
Quarter: 2014Q1

REPORT INFORMATION
  Report Type: Spontaneous
  Country: US (occurrence: US)
  Receive Date: 20140228
  Receipt Date: 20140228
  Transmission Date: 20141002
  Serious: No
  Sender: FDA-Public Use
  Company Number: US-009507513-1402USA011592

PATIENT
  Age: 52 Year
  Sex: Male

DRUGS (1)
  1. PEGINTRON [Suspect]
     Indication: HEPATITIS C
     Dosage: 0.5 CC, ONCE A WEEK
     Dates: start: 20140215

REACTIONS (2)
  - Cough [Unknown]
  - Pyrexia [Unknown]
